FAERS Safety Report 8501835 (Version 2)
Quarter: 2013Q4

REPORT INFORMATION
  Report Type: Report from Study
  Country: DE (occurrence: DE)
  Receive Date: 20120410
  Receipt Date: 20131210
  Transmission Date: 20140711
  Serious: Yes (Hospitalization)
  Sender: FDA-Public Use
  Company Number: DE-PFIZER INC-2012080375

PATIENT
  Age: 64 Year
  Sex: Male
  Weight: 74 kg

DRUGS (6)
  1. SUNITINIB MALATE [Suspect]
     Dosage: DOSE ACCORDING TO PROTOCOL
     Dates: start: 20110429, end: 20120326
  2. ASS [Concomitant]
     Dosage: 100 MG, 1X/DAY
     Dates: start: 20110326
  3. BISOPROLOL [Concomitant]
     Dosage: 2.5 MG, 1X/DAY
     Dates: start: 2005
  4. MIRTAZAPINE [Concomitant]
     Dosage: 30 MG, 1X/DAY
     Dates: start: 20120328
  5. TAVOR [Concomitant]
     Dosage: 1 MG, 1X/DAY
     Dates: start: 20110609
  6. OMEP [Concomitant]
     Dosage: 20 MG, 1X/DAY
     Dates: start: 20110617

REACTIONS (1)
  - Coronary artery disease [Recovered/Resolved with Sequelae]
